FAERS Safety Report 5394383-6 (Version None)
Quarter: 2007Q3

REPORT INFORMATION
  Report Type: 
  Country: None (occurrence: None)
  Receive Date: 20070723
  Receipt Date: 20070710
  Transmission Date: 20080115
  Serious: Yes (Hospitalization)
  Sender: FDA-Public Use
  Company Number: US-SANOFI-SYNTHELABO-A03200704656

PATIENT
  Sex: Female
  Weight: 110 kg

DRUGS (15)
  1. NOROCO [Concomitant]
     Dosage: 10/325 MG P.R.N
     Route: 048
  2. LYRICA [Concomitant]
     Route: 048
  3. COUMADIN [Concomitant]
     Dosage: 7.5 MG (TUES, THURS, SAT + SUN) AND 5 MG (MOND, WED + FRIDAY)
     Route: 048
  4. OXYCODONE HCL [Concomitant]
     Route: 048
  5. HYDROCHLOROTHIAZIDE [Concomitant]
     Route: 048
  6. CYMBALTA [Concomitant]
     Route: 048
  7. DIAZEPAM [Concomitant]
     Route: 048
  8. PROTONIX [Concomitant]
     Route: 048
  9. ACTOS [Concomitant]
     Route: 048
  10. COZAAR [Concomitant]
     Route: 048
  11. SIMVASTATIN [Concomitant]
     Route: 048
  12. ARAVA [Concomitant]
     Route: 048
  13. SULAR [Concomitant]
     Route: 048
  14. PLAQUENIL [Suspect]
     Indication: DRUG USE FOR UNKNOWN INDICATION
     Route: 048
     Dates: start: 20070409
  15. RIMONABANT/PLACEBO [Concomitant]

REACTIONS (6)
  - DEHYDRATION [None]
  - DIARRHOEA [None]
  - GASTROENTERITIS [None]
  - PAIN [None]
  - PYREXIA [None]
  - VOMITING [None]
